FAERS Safety Report 10216282 (Version 1)
Quarter: 2014Q2

REPORT INFORMATION
  Report Type: Spontaneous
  Country: DE (occurrence: DE)
  Receive Date: 20140604
  Receipt Date: 20140604
  Transmission Date: 20141212
  Serious: Yes (Other)
  Sender: FDA-Public Use
  Company Number: DE-SA-2014SA069734

PATIENT
  Age: 31 Year
  Sex: Male

DRUGS (1)
  1. LEMTRADA [Suspect]
     Indication: MULTIPLE SCLEROSIS
     Route: 042
     Dates: start: 20140519, end: 20140523

REACTIONS (4)
  - Angina pectoris [Unknown]
  - Skin reaction [Unknown]
  - Nausea [Unknown]
  - Hypoaesthesia [Unknown]
